FAERS Safety Report 4799772-6 (Version None)
Quarter: 2005Q4

REPORT INFORMATION
  Report Type: 
  Country: None (occurrence: None)
  Receive Date: 20051012
  Receipt Date: 20051012
  Transmission Date: 20060501
  Serious: Yes (Hospitalization)
  Sender: FDA-Public Use
  Company Number: None

PATIENT
  Sex: Male
  Weight: 79.3795 kg

DRUGS (4)
  1. COUMADIN [Suspect]
     Indication: CARDIAC DISORDER
     Dosage: 5MG  PO QD  (THERAPY DATES: PRIOR TO ADMISSION)
     Route: 048
  2. ZOCOR [Concomitant]
  3. LISINOPRIL [Concomitant]
  4. ATENOLOL [Concomitant]

REACTIONS (3)
  - INTERNATIONAL NORMALISED RATIO INCREASED [None]
  - PROTHROMBIN TIME PROLONGED [None]
  - SPUTUM DISCOLOURED [None]
